FAERS Safety Report 7550759-X (Version None)
Quarter: 2011Q2

REPORT INFORMATION
  Report Type: 
  Country: None (occurrence: None)
  Receive Date: 20110609
  Receipt Date: 20110523
  Transmission Date: 20111010
  Serious: Yes (Other)
  Sender: FDA-Public Use
  Company Number: CC11-0890

PATIENT
  Age: 72 Year
  Sex: Male
  Weight: 92.5338 kg

DRUGS (3)
  1. METFORMIN HCL [Concomitant]
  2. LANTUS [Concomitant]
  3. KETOCONAZOLE [Suspect]
     Indication: PRURITUS
     Dosage: USE QHS FOR ONE WEEK, THEN TWICE A WEEK
     Dates: start: 20100401, end: 20110401

REACTIONS (2)
  - ALOPECIA [None]
  - MADAROSIS [None]
